FAERS Safety Report 15908123 (Version 1)
Quarter: 2019Q1

REPORT INFORMATION
  Report Type: Spontaneous
  Country: FR (occurrence: FR)
  Receive Date: 20190204
  Receipt Date: 20190204
  Transmission Date: 20190417
  Serious: Yes (Hospitalization)
  Sender: FDA-Public Use
  Company Number: FR-PFIZER INC-2019045984

PATIENT
  Age: 12 Year
  Sex: Female
  Weight: 44.6 kg

DRUGS (17)
  1. VANCOMYCIN HCL [Suspect]
     Active Substance: VANCOMYCIN HYDROCHLORIDE
     Indication: PYREXIA
     Dosage: 64 MG/KG, 1X/DAY
     Route: 042
     Dates: start: 20181023, end: 20181126
  2. CIPROFLOXACIN. [Suspect]
     Active Substance: CIPROFLOXACIN
     Indication: PYREXIA
     Dosage: 1200 MG, 1X/DAY
     Route: 042
     Dates: start: 20181109, end: 20181130
  3. NEFOPAM HYDROCHLORIDE [Concomitant]
     Active Substance: NEFOPAM HYDROCHLORIDE
     Route: 042
     Dates: start: 20181017, end: 20181205
  4. AMBISOME [Suspect]
     Active Substance: AMPHOTERICIN B
     Indication: PYREXIA
     Dosage: 3 MG/KG, 1X/DAY
     Route: 042
     Dates: start: 20181106, end: 20181128
  5. ONDANSETRON [Concomitant]
     Active Substance: ONDANSETRON
     Indication: NAUSEA
     Route: 042
     Dates: start: 20181017, end: 20181128
  6. OMEPRAZOLE. [Concomitant]
     Active Substance: OMEPRAZOLE
     Route: 042
     Dates: start: 20181026, end: 20181205
  7. GRANOCYTE [Suspect]
     Active Substance: LENOGRASTIM
     Indication: APLASIA
     Dosage: 34 MILLION IU, 1X/DAY
     Route: 042
     Dates: start: 20181118, end: 20181203
  8. BACTRIM [Suspect]
     Active Substance: SULFAMETHOXAZOLE\TRIMETHOPRIM
     Indication: PROPHYLAXIS
     Dosage: 800/160 MG DAILY
     Route: 042
     Dates: start: 20181023, end: 20181128
  9. MIDAZOLAM [Concomitant]
     Active Substance: MIDAZOLAM HYDROCHLORIDE
     Route: 042
     Dates: start: 20181010, end: 20181128
  10. METRONIDAZOLE. [Concomitant]
     Active Substance: METRONIDAZOLE
     Indication: CLOSTRIDIAL INFECTION
     Dosage: 1500 MG, 1X/DAY
     Route: 042
     Dates: start: 20181025, end: 20181104
  11. KETAMINE [Concomitant]
     Active Substance: KETAMINE
     Indication: PAIN
     Route: 042
     Dates: start: 20181123, end: 20181207
  12. PLITICAN [Concomitant]
     Active Substance: ALIZAPRIDE HYDROCHLORIDE
     Indication: NAUSEA
     Route: 042
     Dates: start: 20181016, end: 20181022
  13. POLARAMINE [Concomitant]
     Active Substance: DEXCHLORPHENIRAMINE MALEATE
     Route: 042
     Dates: start: 20181013, end: 20181014
  14. MEROPENEM. [Suspect]
     Active Substance: MEROPENEM
     Indication: PYREXIA
     Dosage: 60 MG/KG, 1X/DAY
     Route: 042
     Dates: start: 20181114, end: 20181130
  15. PIPERACILLIN/TAZOBACTAM [Concomitant]
     Active Substance: PIPERACILLIN SODIUM\TAZOBACTAM SODIUM
     Indication: PYREXIA
     Dosage: 12 G, 1X/DAY
     Route: 042
     Dates: start: 20181023, end: 20181114
  16. NALBUPHINE HYDROCHLORIDE. [Concomitant]
     Active Substance: NALBUPHINE HYDROCHLORIDE
     Indication: PAIN
     Route: 042
     Dates: start: 20181010, end: 20181128
  17. HYDROXYZINE HYDROCHLORIDE. [Concomitant]
     Active Substance: HYDROXYZINE HYDROCHLORIDE
     Route: 042
     Dates: start: 20181115, end: 20181205

REACTIONS (1)
  - Rash maculo-papular [Recovered/Resolved]

NARRATIVE: CASE EVENT DATE: 20181126
